FAERS Safety Report 7465720-3 (Version None)
Quarter: 2011Q2

REPORT INFORMATION
  Report Type: 
  Country: None (occurrence: None)
  Receive Date: 20110509
  Receipt Date: 20110502
  Transmission Date: 20111010
  Serious: Yes (Hospitalization)
  Sender: FDA-Public Use
  Company Number: B0717703A

PATIENT
  Age: 74 Year
  Sex: Female

DRUGS (1)
  1. ARIXTRA [Suspect]
     Route: 065
     Dates: start: 20110420, end: 20110421

REACTIONS (1)
  - RETROPERITONEAL HAEMATOMA [None]
